FAERS Safety Report 7335834-7 (Version None)
Quarter: 2011Q1

REPORT INFORMATION
  Report Type: 
  Country: None (occurrence: None)
  Receive Date: 20110307
  Receipt Date: 20110225
  Transmission Date: 20110831
  Serious: Yes (Hospitalization)
  Sender: FDA-Public Use
  Company Number: JP-MERCK-1102USA01046

PATIENT
  Age: 78 Year
  Sex: Female
  Weight: 57 kg

DRUGS (9)
  1. METFORMIN HCL [Concomitant]
     Route: 048
     Dates: start: 20110113
  2. JANUVIA [Suspect]
     Indication: DIABETES MELLITUS
     Route: 048
     Dates: start: 20110114, end: 20110121
  3. THYRADIN-S [Concomitant]
     Indication: HYPOTHYROIDISM
     Route: 048
  4. TAKEPRON [Concomitant]
     Indication: GASTRIC ULCER
     Route: 048
  5. GASMOTIN [Concomitant]
     Indication: GASTRIC ULCER
     Route: 048
  6. GLUCOBAY [Concomitant]
     Indication: DIABETES MELLITUS
     Route: 048
     Dates: start: 20080627, end: 20110113
  7. AMARYL [Concomitant]
     Indication: DIABETES MELLITUS
     Route: 048
  8. METFORMIN HCL [Concomitant]
     Indication: DIABETES MELLITUS
     Route: 048
     Dates: start: 20101118, end: 20110113
  9. SENNOSIDES [Concomitant]
     Indication: CONSTIPATION
     Route: 048
     Dates: start: 20080328

REACTIONS (1)
  - INTERSTITIAL LUNG DISEASE [None]
